FAERS Safety Report 13299486 (Version 1)
Quarter: 2017Q1

REPORT INFORMATION
  Report Type: Report from Study
  Country: US (occurrence: US)
  Receive Date: 20170306
  Receipt Date: 20170306
  Transmission Date: 20170428
  Serious: No
  Sender: FDA-Public Use
  Company Number: US-AMGEN-USASL2017031968

PATIENT
  Age: 61 Year
  Sex: Male

DRUGS (1)
  1. ENBREL [Suspect]
     Active Substance: ETANERCEPT
     Indication: RHEUMATOID ARTHRITIS
     Dosage: 50 MG, UNK
     Route: 065

REACTIONS (6)
  - Injection site pruritus [Unknown]
  - Injection site swelling [Recovering/Resolving]
  - Injection site induration [Recovering/Resolving]
  - Injection site erythema [Unknown]
  - Wrong technique in product usage process [Unknown]
  - Injection site warmth [Unknown]
